FAERS Safety Report 7906111-8 (Version None)
Quarter: 2011Q4

REPORT INFORMATION
  Report Type: 
  Country: None (occurrence: None)
  Receive Date: 20111110
  Receipt Date: 20111108
  Transmission Date: 20120403
  Serious: Yes (Death)
  Sender: FDA-Public Use
  Company Number: US-AMGEN-USASP2011019518

PATIENT
  Sex: Female
  Weight: 50.794 kg

DRUGS (1)
  1. NPLATE [Suspect]
     Indication: IDIOPATHIC THROMBOCYTOPENIC PURPURA
     Dosage: 52 MUG, QWK
     Route: 058
     Dates: start: 20110323, end: 20110323

REACTIONS (1)
  - PNEUMONIA [None]
